FAERS Safety Report 4855084-3 (Version None)
Quarter: 2005Q4

REPORT INFORMATION
  Report Type: 
  Country: None (occurrence: None)
  Receive Date: 20051215
  Receipt Date: 20051205
  Transmission Date: 20060501
  Serious: Yes (Death)
  Sender: FDA-Public Use
  Company Number: US-ABBOTT-05P-163-0319481-00

PATIENT
  Sex: Male

DRUGS (1)
  1. FERROUS SULFATE TAB [Suspect]
     Indication: DRUG USE FOR UNKNOWN INDICATION
     Dosage: 1/4 POUND OF A SUSPENSION

REACTIONS (5)
  - ACCIDENTAL EXPOSURE [None]
  - CYANOSIS [None]
  - HAEMATEMESIS [None]
  - OVERDOSE [None]
  - SHOCK [None]
